FAERS Safety Report 10527078 (Version 1)
Quarter: 2014Q4

REPORT INFORMATION
  Report Type: Spontaneous
  Country: US (occurrence: None)
  Receive Date: 20141017
  Receipt Date: 20141017
  Transmission Date: 20150528
  Serious: Yes (Life-Threatening, Hospitalization)
  Sender: FDA-Public Use
  Company Number: None

PATIENT
  Age: 55 Year
  Sex: Female

DRUGS (2)
  1. DULOXETINE [Suspect]
     Active Substance: DULOXETINE
     Indication: MAJOR DEPRESSION
     Dosage: 30 MG 3 CAPS A DAY ORAL
     Route: 048
     Dates: start: 201401, end: 201403
  2. DULOXETINE [Suspect]
     Active Substance: DULOXETINE
     Indication: AFFECTIVE DISORDER
     Dosage: 30 MG 3 CAPS A DAY ORAL
     Route: 048
     Dates: start: 201401, end: 201403

REACTIONS (4)
  - Anxiety [None]
  - Suicidal ideation [None]
  - Product substitution issue [None]
  - Depression [None]

NARRATIVE: CASE EVENT DATE: 201401
